FAERS Safety Report 15315635 (Version 2)
Quarter: 2018Q3

REPORT INFORMATION
  Report Type: Report from Study
  Country: CA (occurrence: CA)
  Receive Date: 20180824
  Receipt Date: 20180824
  Transmission Date: 20181010
  Serious: Yes (Hospitalization)
  Sender: FDA-Public Use
  Company Number: PHHY2018CA072902

PATIENT
  Age: 10 Year
  Sex: Female
  Weight: 19.8 kg

DRUGS (6)
  1. RED CELLS MAP [Concomitant]
     Active Substance: HUMAN RED BLOOD CELL
     Indication: CYTOPENIA
  2. PREDNISONE. [Suspect]
     Active Substance: PREDNISONE
     Indication: ACUTE LYMPHOCYTIC LEUKAEMIA
     Dosage: UNK
     Route: 065
     Dates: start: 20180730, end: 20180731
  3. PLATELETS [Concomitant]
     Active Substance: HUMAN PLATELET, ALLOGENIC
     Indication: CYTOPENIA
     Dosage: UNK
     Route: 065
     Dates: start: 20180729, end: 20180731
  4. RED CELLS MAP [Concomitant]
     Active Substance: HUMAN RED BLOOD CELL
     Indication: HAEMORRHAGE
  5. PLATELETS [Concomitant]
     Active Substance: HUMAN PLATELET, ALLOGENIC
     Indication: HAEMORRHAGE
  6. TRAMETINIB [Suspect]
     Active Substance: TRAMETINIB
     Indication: ACUTE LYMPHOCYTIC LEUKAEMIA
     Dosage: 0.5 MG, QD
     Route: 048
     Dates: start: 20180727, end: 20180730

REACTIONS (6)
  - Pneumonia [Unknown]
  - Oedema peripheral [Recovering/Resolving]
  - Sepsis [Unknown]
  - Hypertension [Recovering/Resolving]
  - Localised oedema [Recovering/Resolving]
  - Hypoalbuminaemia [Recovering/Resolving]

NARRATIVE: CASE EVENT DATE: 20180727
